FAERS Safety Report 4313890-8 (Version None)
Quarter: 2004Q1

REPORT INFORMATION
  Report Type: 
  Country: None (occurrence: None)
  Receive Date: 20040305
  Receipt Date: 20031125
  Transmission Date: 20041129
  Serious: Yes (Hospitalization, Other)
  Sender: FDA-Public Use
  Company Number: USA-2003-0011252

PATIENT
  Age: 53 Year

DRUGS (9)
  1. CHIROCAINE [Suspect]
     Indication: ANALGESIC THERAPY
     Dosage: 10 ML, EPIDURAL
     Route: 008
     Dates: start: 20031118, end: 20031118
  2. CLONIDINE [Concomitant]
  3. METHYLPREDNISOLONE [Concomitant]
  4. MIDAZOLAM HCL [Concomitant]
  5. HALOPERIDOL [Concomitant]
  6. FLUOXETINE [Concomitant]
  7. LORAZEPAM [Concomitant]
  8. ACETAMINOPHEN W/ CODEINE [Concomitant]
  9. TAMOXIFEN (TAMOXIFEN) [Concomitant]

REACTIONS (2)
  - ANAESTHETIC COMPLICATION NEUROLOGICAL [None]
  - HYPOTENSION [None]
